FAERS Safety Report 4954913-2 (Version None)
Quarter: 2006Q1

REPORT INFORMATION
  Report Type: 
  Country: None (occurrence: None)
  Receive Date: 20060322
  Receipt Date: 20060302
  Transmission Date: 20060701
  Serious: Yes (Hospitalization)
  Sender: FDA-Public Use
  Company Number: FR200603001028

PATIENT
  Age: 40 Year
  Sex: Female

DRUGS (1)
  1. PROZAC [Suspect]
     Indication: DEPRESSION
     Dosage: 20 MG, DAILY (1/D), ORAL
     Route: 048
     Dates: start: 19980101

REACTIONS (4)
  - AGGRESSION [None]
  - ANXIETY [None]
  - BIPOLAR II DISORDER [None]
  - MAJOR DEPRESSION [None]
